FAERS Safety Report 14435556 (Version 1)
Quarter: 2018Q1

REPORT INFORMATION
  Report Type: Spontaneous
  Country: US (occurrence: US)
  Receive Date: 20180124
  Receipt Date: 20180124
  Transmission Date: 20180509
  Serious: No
  Sender: FDA-Public Use
  Company Number: None

PATIENT
  Age: 61 Year
  Sex: Female

DRUGS (12)
  1. TEMAZEPAM. [Concomitant]
     Active Substance: TEMAZEPAM
  2. SENNA [Concomitant]
     Active Substance: SENNA LEAF\SENNOSIDES\SENNOSIDES A AND B
  3. GABAPENTIN. [Concomitant]
     Active Substance: GABAPENTIN
  4. CEPHALEXIN. [Concomitant]
     Active Substance: CEPHALEXIN
  5. FENTANYL. [Concomitant]
     Active Substance: FENTANYL
  6. LONSURF [Suspect]
     Active Substance: TIPIRACIL HYDROCHLORIDE\TRIFLURIDINE
  7. SULFAMETHOXAZOLE-TMP [Concomitant]
     Active Substance: SULFAMETHOXAZOLE\TRIMETHOPRIM
  8. FAMCICLOVIR. [Concomitant]
     Active Substance: FAMCICLOVIR
  9. HYDROMORPHONE [Concomitant]
     Active Substance: HYDROMORPHONE
  10. MORPHINE SULF [Concomitant]
     Active Substance: MORPHINE SULFATE
  11. LONSURF [Suspect]
     Active Substance: TIPIRACIL HYDROCHLORIDE\TRIFLURIDINE
     Indication: APPENDIX CANCER
     Route: 048
     Dates: start: 20170204, end: 20180109
  12. POTASSIUM [Concomitant]
     Active Substance: POTASSIUM

REACTIONS (1)
  - Renal failure [None]

NARRATIVE: CASE EVENT DATE: 20180123
